FAERS Safety Report 10644982 (Version 1)
Quarter: 2014Q4

REPORT INFORMATION
  Report Type: Spontaneous
  Country: US (occurrence: None)
  Receive Date: 20141210
  Receipt Date: 20141210
  Transmission Date: 20150529
  Serious: Yes (Other)
  Sender: FDA-Public Use
  Company Number: None

PATIENT
  Age: 43 Year
  Sex: Female
  Weight: 67.13 kg

DRUGS (1)
  1. AVONEX [Suspect]
     Active Substance: INTERFERON BETA-1A
     Indication: MULTIPLE SCLEROSIS
     Dosage: STRENGTH: 30MCG, DOSE FORM: INJECTABLE, FREQUENCY: QWK, ROUTE: INTRAMUSCULAR 030
     Route: 030
     Dates: start: 201405

REACTIONS (3)
  - Crying [None]
  - Self-injurious ideation [None]
  - Feeling abnormal [None]

NARRATIVE: CASE EVENT DATE: 20141124
